FAERS Safety Report 23453260 (Version 3)
Quarter: 2025Q2

REPORT INFORMATION
  Report Type: Spontaneous
  Country: CA (occurrence: CA)
  Receive Date: 20240129
  Receipt Date: 20250626
  Transmission Date: 20250717
  Serious: Yes (Other)
  Sender: PFIZER
  Company Number: CA-PFIZER INC-202300173786

PATIENT
  Age: 47 Year
  Sex: Female

DRUGS (11)
  1. RUXIENCE [Suspect]
     Active Substance: RITUXIMAB-PVVR
     Indication: Glomerulonephritis membranous
     Route: 042
     Dates: start: 20230502, end: 20230516
  2. RUXIENCE [Suspect]
     Active Substance: RITUXIMAB-PVVR
     Route: 042
     Dates: start: 20240109
  3. RUXIENCE [Suspect]
     Active Substance: RITUXIMAB-PVVR
     Route: 042
     Dates: start: 20240123
  4. RUXIENCE [Suspect]
     Active Substance: RITUXIMAB-PVVR
     Route: 042
     Dates: start: 20250210
  5. RUXIENCE [Suspect]
     Active Substance: RITUXIMAB-PVVR
     Route: 042
     Dates: start: 20250224
  6. CANDESARTAN [Concomitant]
     Active Substance: CANDESARTAN
  7. GLICLAZIDE [Concomitant]
     Active Substance: GLICLAZIDE
  8. LASIX [Concomitant]
     Active Substance: FUROSEMIDE
  9. ROSUVASTATIN [Concomitant]
     Active Substance: ROSUVASTATIN
  10. SANDIMMUNE [Concomitant]
     Active Substance: CYCLOSPORINE
  11. SPIRONOLACTONE [Concomitant]
     Active Substance: SPIRONOLACTONE

REACTIONS (6)
  - Nasal congestion [Recovered/Resolved]
  - Hyperhidrosis [Recovered/Resolved]
  - Blood pressure abnormal [Recovered/Resolved]
  - Condition aggravated [Not Recovered/Not Resolved]
  - Drug ineffective for unapproved indication [Unknown]
  - Off label use [Unknown]

NARRATIVE: CASE EVENT DATE: 20230502
